FAERS Safety Report 4329654-5 (Version None)
Quarter: 2004Q2

REPORT INFORMATION
  Report Type: 
  Country: None (occurrence: None)
  Receive Date: 20040401
  Receipt Date: 20031218
  Transmission Date: 20050107
  Serious: Yes (Life-Threatening, Hospitalization)
  Sender: FDA-Public Use
  Company Number: PHBS2003JP14275

PATIENT
  Age: 8 Year
  Sex: Female
  Weight: 29 kg

DRUGS (3)
  1. LAMISIL [Suspect]
     Indication: NAIL TINEA
     Dosage: 125 MG/D
     Route: 048
     Dates: start: 20030823, end: 20030922
  2. MYCOSPOR [Concomitant]
     Indication: TINEA PEDIS
     Route: 061
  3. PROTOPIC [Concomitant]
     Indication: DERMATITIS ATOPIC
     Route: 061

REACTIONS (9)
  - ANAEMIA [None]
  - BONE MARROW DEPRESSION [None]
  - COUGH [None]
  - PLATELET COUNT DECREASED [None]
  - PRODUCTIVE COUGH [None]
  - SKIN BLEEDING [None]
  - SPUTUM ABNORMAL [None]
  - UPPER RESPIRATORY TRACT INFLAMMATION [None]
  - WHITE BLOOD CELL COUNT DECREASED [None]
